FAERS Safety Report 7156253-2 (Version None)
Quarter: 2010Q4

REPORT INFORMATION
  Report Type: 
  Country: None (occurrence: None)
  Receive Date: 20101214
  Receipt Date: 20101207
  Transmission Date: 20110411
  Serious: Yes (Death)
  Sender: FDA-Public Use
  Company Number: CH-ELI_LILLY_AND_COMPANY-CH201012001795

PATIENT

DRUGS (3)
  1. GEMZAR [Suspect]
     Dosage: 1000 MG/M2, 21DAY CYCLE ON DAY1 AND 8
     Route: 042
  2. ELOXATIN [Concomitant]
     Indication: PANCREATIC CARCINOMA
     Dosage: UNK, 21DAY CYCLE ON DAY1
     Route: 042
  3. XELODA [Concomitant]
     Indication: PANCREATIC CARCINOMA
     Dosage: UNK, 2/D FOR 28 DOSE FROM DAY1 THROUGH DAY14
     Route: 048

REACTIONS (1)
  - DIARRHOEA [None]
